FAERS Safety Report 9944943 (Version 1)
Quarter: 2014Q1

REPORT INFORMATION
  Report Type: Report from Study
  Country: US (occurrence: US)
  Receive Date: 20140303
  Receipt Date: 20140303
  Transmission Date: 20141002
  Serious: No
  Sender: FDA-Public Use
  Company Number: US-ABBVIE-13P-163-1052417-00

PATIENT
  Age: 25 Year
  Sex: Female

DRUGS (2)
  1. HUMIRA [Suspect]
     Indication: CROHN^S DISEASE
     Dates: start: 20121110
  2. RECLIPSEN [Concomitant]
     Indication: CONTRACEPTION

REACTIONS (2)
  - Oropharyngeal pain [Unknown]
  - Sinusitis [Unknown]
